FAERS Safety Report 5815757-2 (Version None)
Quarter: 2008Q3

REPORT INFORMATION
  Report Type: 
  Country: None (occurrence: None)
  Receive Date: 20080721
  Receipt Date: 20080527
  Transmission Date: 20090109
  Serious: No
  Sender: FDA-Public Use
  Company Number: US-TYCO HEALTHCARE/MALLINCKRODT-T200800984

PATIENT

DRUGS (2)
  1. TECHNESCAN PYP KIT [Suspect]
     Indication: RADIOISOTOPE SCAN
     Dosage: 1.5 ML, SINGLE
     Route: 042
     Dates: start: 20080527, end: 20080527
  2. ULTRA-TECHNEKOW [Concomitant]
     Indication: RADIOISOTOPE SCAN
     Dosage: UNK, UNK
     Route: 042
     Dates: start: 20080527, end: 20080527

REACTIONS (1)
  - DRUG INEFFECTIVE [None]
